FAERS Safety Report 9037027 (Version 1)
Quarter: 2013Q1

REPORT INFORMATION
  Report Type: Spontaneous
  Country: DK (occurrence: None)
  Receive Date: 20130116
  Receipt Date: 20130116
  Transmission Date: 20140127
  Serious: Yes (Life-Threatening, Hospitalization)
  Sender: FDA-Public Use
  Company Number: 2013MA000332

PATIENT
  Age: 57 Year
  Sex: Male

DRUGS (1)
  1. BUTALBITAL, ASPIRIN (ACETYLSALICYLIC ACID AND CAFFEINE TABLES USP 50MG/325MG/40MG (AELLC) (VUTALBITAL, ASPIRIN AND CAFFEINE) [Suspect]
     Indication: PRODUCT USED FOR UNKNOWN INDICATION

REACTIONS (1)
  - Subarachnoid haemorrhage [None]
